FAERS Safety Report 16456447 (Version 1)
Quarter: 2019Q2

REPORT INFORMATION
  Report Type: Spontaneous
  Country: US (occurrence: US)
  Receive Date: 20190620
  Receipt Date: 20190620
  Transmission Date: 20190711
  Serious: No
  Sender: FDA-Public Use
  Company Number: US-DRREDDYS-USA/USA/19/0111049

PATIENT
  Age: 52 Year
  Sex: Female
  Weight: 82.35 kg

DRUGS (4)
  1. TYLENOL [Concomitant]
     Active Substance: ACETAMINOPHEN
     Indication: BACK PAIN
  2. PROPRANOLOL [Concomitant]
     Active Substance: PROPRANOLOL HYDROCHLORIDE
     Indication: CARDIAC DISORDER
  3. IBUPROFEN. [Concomitant]
     Active Substance: IBUPROFEN
     Indication: BACK PAIN
     Route: 065
  4. OMEPRAZOLE MAGNESIUM DELAYED RELEASE OTC [Suspect]
     Active Substance: OMEPRAZOLE MAGNESIUM
     Indication: DYSPEPSIA
     Route: 048
     Dates: start: 2019

REACTIONS (5)
  - Drug ineffective [Not Recovered/Not Resolved]
  - Gastrooesophageal reflux disease [Recovering/Resolving]
  - Product quality issue [Unknown]
  - Insomnia [Unknown]
  - Off label use [Not Recovered/Not Resolved]

NARRATIVE: CASE EVENT DATE: 20190505
